FAERS Safety Report 12157865 (Version 1)
Quarter: 2016Q1

REPORT INFORMATION
  Report Type: Spontaneous
  Country: US (occurrence: US)
  Receive Date: 20160308
  Receipt Date: 20160308
  Transmission Date: 20160526
  Serious: Yes (Hospitalization)
  Sender: FDA-Public Use
  Company Number: US-JNJFOC-20150114160

PATIENT
  Sex: Female

DRUGS (7)
  1. IMBRUVICA [Suspect]
     Active Substance: IBRUTINIB
     Indication: LYMPHOMA
     Route: 048
     Dates: start: 20140805, end: 2014
  2. METOPROLOL. [Concomitant]
     Active Substance: METOPROLOL
  3. TYZEKA [Concomitant]
     Active Substance: TELBIVUDINE
  4. DONEPEZIL. [Concomitant]
     Active Substance: DONEPEZIL
  5. LEVOTHYROXINE. [Concomitant]
     Active Substance: LEVOTHYROXINE
  6. WARFARIN [Concomitant]
     Active Substance: WARFARIN
  7. ZOCOR [Concomitant]
     Active Substance: SIMVASTATIN

REACTIONS (2)
  - Urinary tract infection [Unknown]
  - Loss of consciousness [Unknown]

NARRATIVE: CASE EVENT DATE: 2014
